FAERS Safety Report 9932045 (Version 1)
Quarter: 2014Q1

REPORT INFORMATION
  Report Type: Spontaneous
  Country: US (occurrence: US)
  Receive Date: 20140228
  Receipt Date: 20140228
  Transmission Date: 20141002
  Serious: No
  Sender: FDA-Public Use
  Company Number: US-ABBVIE-13P-163-1134659-00

PATIENT
  Sex: Male
  Weight: 72.64 kg

DRUGS (11)
  1. ANDROGEL 1% [Suspect]
     Indication: BLOOD TESTOSTERONE DECREASED
     Dosage: SIX PUMPS
     Route: 061
     Dates: start: 2005
  2. ANDROGEL 1% [Suspect]
     Dosage: FOUR PUMPS DAILY
     Route: 061
  3. ANDROGEL 1% [Suspect]
     Dosage: FIVE PUMPS DAILY
     Route: 061
     Dates: end: 201305
  4. ANDROGEL 1.62% [Suspect]
     Indication: BLOOD TESTOSTERONE DECREASED
     Dosage: FOUR PUMPS
     Route: 061
     Dates: start: 201305
  5. LIPITOR [Concomitant]
     Indication: BLOOD CHOLESTEROL INCREASED
     Route: 048
  6. FLOMAX [Concomitant]
     Indication: PROSTATIC DISORDER
  7. LISINOPRIL [Concomitant]
     Indication: HYPERTENSION
     Route: 048
  8. PRILOSEC [Concomitant]
     Indication: PRODUCT USED FOR UNKNOWN INDICATION
  9. MULTIVITAMIN [Concomitant]
     Indication: PRODUCT USED FOR UNKNOWN INDICATION
     Route: 048
  10. CALCIUM [Concomitant]
     Indication: OSTEOPOROSIS
     Route: 048
  11. VITAMIN D3 [Concomitant]
     Indication: PRODUCT USED FOR UNKNOWN INDICATION

REACTIONS (4)
  - Prostatic specific antigen increased [Not Recovered/Not Resolved]
  - Nausea [Recovered/Resolved]
  - Drug ineffective [Recovering/Resolving]
  - Blood testosterone increased [Recovered/Resolved]
